FAERS Safety Report 15439140 (Version 1)
Quarter: 2018Q3

REPORT INFORMATION
  Report Type: Spontaneous
  Country: US (occurrence: US)
  Receive Date: 20180924
  Receipt Date: 20180924
  Transmission Date: 20181010
  Serious: No
  Sender: FDA-Public Use
  Company Number: None

PATIENT
  Sex: Female
  Weight: 92.6 kg

DRUGS (2)
  1. TAXOL [Concomitant]
     Active Substance: PACLITAXEL
     Dates: end: 20180808
  2. CARBOPLATIN. [Suspect]
     Active Substance: CARBOPLATIN
     Dates: end: 20180808

REACTIONS (16)
  - Abdominal pain [None]
  - White blood cell count increased [None]
  - Nausea [None]
  - Intestinal perforation [None]
  - Cardiomyopathy [None]
  - Pulmonary embolism [None]
  - Back pain [None]
  - Sinus tachycardia [None]
  - Intestinal obstruction [None]
  - Abdominal distension [None]
  - Aortic aneurysm [None]
  - Vomiting [None]
  - Haemoglobin decreased [None]
  - Delirium [None]
  - Pain [None]
  - Constipation [None]

NARRATIVE: CASE EVENT DATE: 20180904
